FAERS Safety Report 24619154 (Version 1)
Quarter: 2024Q4

REPORT INFORMATION
  Report Type: Spontaneous
  Country: US (occurrence: US)
  Receive Date: 20241114
  Receipt Date: 20241114
  Transmission Date: 20250115
  Serious: No
  Sender: CURRAX PHARMACEUTICALS
  Company Number: US-2023CUR004629

PATIENT
  Sex: Female

DRUGS (2)
  1. CONTRAVE [Suspect]
     Active Substance: BUPROPION HYDROCHLORIDE\NALTREXONE HYDROCHLORIDE
     Indication: Weight control
     Dosage: STRENGTH 8/90 MG, ONE PILL IN THE MORNING
     Route: 048
     Dates: start: 202310, end: 202310
  2. ALEVE [Concomitant]
     Active Substance: NAPROXEN SODIUM
     Indication: Arthritis
     Dosage: UNK

REACTIONS (6)
  - Lymphadenopathy [Recovering/Resolving]
  - Feeling abnormal [Recovering/Resolving]
  - Rash [Recovering/Resolving]
  - Dry mouth [Recovering/Resolving]
  - Hepatic enzyme increased [Recovering/Resolving]
  - Anxiety [Unknown]

NARRATIVE: CASE EVENT DATE: 20230101
